FAERS Safety Report 11330369 (Version 1)
Quarter: 2015Q3

REPORT INFORMATION
  Report Type: Spontaneous
  Country: US (occurrence: None)
  Receive Date: 20150731
  Receipt Date: 20150731
  Transmission Date: 20151125
  Serious: Yes (Life-Threatening, Hospitalization, Disabling, Other)
  Sender: FDA-Public Use
  Company Number: None

PATIENT
  Age: 74 Year
  Sex: Male
  Weight: 152.5 kg

DRUGS (1)
  1. FMP250 OPENBIOME [Suspect]
     Active Substance: FECAL MICROBIOTA
     Indication: CLOSTRIDIUM DIFFICILE INFECTION
     Dosage: 250ML ONCE FEEDING TUBE
     Dates: start: 20150625

REACTIONS (8)
  - Haemorrhoids [None]
  - Large intestinal ulcer [None]
  - Abdominal sepsis [None]
  - Anaemia [None]
  - Escherichia infection [None]
  - Diarrhoea haemorrhagic [None]
  - Colitis [None]
  - Large intestine perforation [None]

NARRATIVE: CASE EVENT DATE: 20150630
